FAERS Safety Report 6895246-7 (Version None)
Quarter: 2010Q3

REPORT INFORMATION
  Report Type: 
  Country: None (occurrence: None)
  Receive Date: 20100802
  Receipt Date: 20100722
  Transmission Date: 20110219
  Serious: Yes (Hospitalization)
  Sender: FDA-Public Use
  Company Number: US-SANOFI-AVENTIS-2010SA043560

PATIENT
  Age: 62 Year
  Sex: Female

DRUGS (4)
  1. LANTUS [Suspect]
     Indication: TYPE 2 DIABETES MELLITUS
     Dosage: DOSE:25 UNIT(S)
     Route: 058
     Dates: start: 20070101
  2. LANTUS [Suspect]
     Dosage: DOSE:12 UNIT(S)
     Route: 058
     Dates: start: 20070101
  3. LANTUS [Suspect]
     Dosage: DOSE:86 UNIT(S)
     Route: 058
     Dates: start: 20070101
  4. SOLOSTAR [Suspect]
     Dates: start: 20070101

REACTIONS (6)
  - BLOOD GLUCOSE INCREASED [None]
  - DIABETES MELLITUS INADEQUATE CONTROL [None]
  - FOOD POISONING [None]
  - GASTROENTERITIS VIRAL [None]
  - KNEE ARTHROPLASTY [None]
  - PAIN [None]
